FAERS Safety Report 8101634-3 (Version None)
Quarter: 2012Q1

REPORT INFORMATION
  Report Type: 
  Country: None (occurrence: None)
  Receive Date: 20120129
  Receipt Date: 20111011
  Transmission Date: 20120608
  Serious: No
  Sender: FDA-Public Use
  Company Number: US-ABBOTT-11P-163-0863246-00

PATIENT
  Sex: Male

DRUGS (5)
  1. SELLARA [Concomitant]
     Indication: PSORIASIS
  2. ASPIRIN [Concomitant]
     Indication: HYPERTENSION
  3. HUMIRA [Suspect]
     Indication: PSORIASIS
     Dates: start: 20110501, end: 20110601
  4. BENICAR [Concomitant]
     Indication: HYPERTENSION
  5. GENGRAF [Concomitant]
     Indication: PSORIASIS
     Dates: start: 20110901

REACTIONS (1)
  - DRUG INEFFECTIVE [None]
